FAERS Safety Report 7791904-0 (Version None)
Quarter: 2011Q4

REPORT INFORMATION
  Report Type: 
  Country: None (occurrence: None)
  Receive Date: 20111003
  Receipt Date: 20110926
  Transmission Date: 20120403
  Serious: Yes (Other)
  Sender: FDA-Public Use
  Company Number: CH-SANOFI-AVENTIS-2011SA063490

PATIENT
  Age: 62 Year
  Sex: Male
  Weight: 85 kg

DRUGS (10)
  1. ETANERCEPT [Suspect]
     Indication: PSORIATIC ARTHROPATHY
     Route: 058
     Dates: start: 20071101
  2. DURAGESIC-100 [Concomitant]
  3. MOTILIUM [Concomitant]
  4. PREDNISOLONE [Concomitant]
  5. CALCIMAGON-D3 [Concomitant]
  6. ARAVA [Suspect]
     Indication: PSORIATIC ARTHROPATHY
     Route: 048
     Dates: start: 20030601
  7. LISINOPRIL [Concomitant]
  8. LISINOPRIL [Concomitant]
  9. ACETAMINOPHEN [Concomitant]
  10. AMLODIPINE [Concomitant]

REACTIONS (4)
  - NORMOCHROMIC NORMOCYTIC ANAEMIA [None]
  - MEGAKARYOCYTES ABNORMAL [None]
  - LYMPHOMA [None]
  - BONE MARROW FAILURE [None]
